FAERS Safety Report 9156646 (Version 1)
Quarter: 2013Q1

REPORT INFORMATION
  Report Type: Spontaneous
  Country: US (occurrence: None)
  Receive Date: 20130307
  Receipt Date: 20130307
  Transmission Date: 20140127
  Serious: Yes (Life-Threatening, Hospitalization)
  Sender: FDA-Public Use
  Company Number: None

PATIENT
  Age: 63 Year
  Sex: Male
  Weight: 101.2 kg

DRUGS (2)
  1. LISINOPRIL [Suspect]
     Indication: CARDIOVASCULAR DISORDER
     Route: 048
     Dates: start: 20080717, end: 20110213
  2. LISINOPRIL [Suspect]
     Indication: SURGERY
     Route: 048
     Dates: start: 20080717, end: 20110213

REACTIONS (6)
  - Syncope [None]
  - Hypovolaemia [None]
  - Hyponatraemia [None]
  - Pharyngeal oedema [None]
  - Lip swelling [None]
  - Angioedema [None]
